FAERS Safety Report 8913964 (Version 1)
Quarter: 2012Q4

REPORT INFORMATION
  Report Type: Spontaneous
  Country: US (occurrence: None)
  Receive Date: 20121115
  Receipt Date: 20121115
  Transmission Date: 20130627
  Serious: No
  Sender: FDA-Public Use
  Company Number: None

PATIENT
  Age: 38 Year
  Sex: Female
  Weight: 90.72 kg

DRUGS (1)
  1. ESCITALOPRAM [Suspect]
     Indication: ANXIETY
     Route: 048

REACTIONS (14)
  - Headache [None]
  - Hot flush [None]
  - Nausea [None]
  - Fatigue [None]
  - Dizziness [None]
  - Tremor [None]
  - Agitation [None]
  - Anxiety [None]
  - Visual impairment [None]
  - Blood pressure increased [None]
  - Product substitution issue [None]
  - Feeling abnormal [None]
  - Disturbance in attention [None]
  - Disturbance in attention [None]
